FAERS Safety Report 12348859 (Version 2)
Quarter: 2016Q2

REPORT INFORMATION
  Report Type: Spontaneous
  Country: IN (occurrence: IN)
  Receive Date: 20160509
  Receipt Date: 20160606
  Transmission Date: 20160815
  Serious: Yes (Hospitalization, Other)
  Sender: FDA-Public Use
  Company Number: IN-ELI_LILLY_AND_COMPANY-IN201605000268

PATIENT
  Sex: Male

DRUGS (3)
  1. INSULIN [Concomitant]
     Active Substance: INSULIN NOS
     Dosage: UNK, UNKNOWN
     Route: 065
  2. TRULICITY [Suspect]
     Active Substance: DULAGLUTIDE
     Indication: PRODUCT USED FOR UNKNOWN INDICATION
     Dosage: 1.5 MG, UNKNOWN
     Route: 065
  3. METFORMIN [Concomitant]
     Active Substance: METFORMIN HYDROCHLORIDE
     Dosage: UNK, UNKNOWN
     Route: 065

REACTIONS (5)
  - Hyperglycaemia [Unknown]
  - Diabetic ketoacidosis [Unknown]
  - Dehydration [Unknown]
  - Nausea [Unknown]
  - Vomiting [Unknown]
